FAERS Safety Report 9339814 (Version 1)
Quarter: 2013Q2

REPORT INFORMATION
  Report Type: Spontaneous
  Country: US (occurrence: None)
  Receive Date: 20130607
  Receipt Date: 20130607
  Transmission Date: 20140414
  Serious: Yes (Other)
  Sender: FDA-Public Use
  Company Number: None

PATIENT
  Age: 41 Year
  Sex: Female
  Weight: 77.11 kg

DRUGS (1)
  1. PRO-HEALTH CLINICAL ORAL RINSE [Suspect]
     Dosage: 2 OZ. TWICE DAILY PO
     Dates: start: 20130602, end: 20130605

REACTIONS (5)
  - Parotid gland enlargement [None]
  - Salivary gland pain [None]
  - Paraesthesia [None]
  - Stomatitis [None]
  - Oral discharge [None]
